FAERS Safety Report 23779062 (Version 1)
Quarter: 2024Q2

REPORT INFORMATION
  Report Type: Spontaneous
  Country: US (occurrence: None)
  Receive Date: 20240424
  Receipt Date: 20240424
  Transmission Date: 20240716
  Serious: No
  Sender: FDA-Public Use
  Company Number: None

PATIENT
  Age: 61 Year
  Sex: Female
  Weight: 69.3 kg

DRUGS (5)
  1. SUBOXONE [Suspect]
     Active Substance: BUPRENORPHINE HYDROCHLORIDE\NALOXONE HYDROCHLORIDE
     Indication: Pain
     Dates: start: 20240420, end: 20240424
  2. ESTROGENS [Concomitant]
     Active Substance: ESTROGENS
  3. SYNTHROID [Concomitant]
     Active Substance: LEVOTHYROXINE SODIUM
  4. PAXIL [Concomitant]
     Active Substance: PAROXETINE HYDROCHLORIDE
  5. CLONAZEPAM [Concomitant]
     Active Substance: CLONAZEPAM

REACTIONS (1)
  - Hypoglycaemia [None]

NARRATIVE: CASE EVENT DATE: 20240424
